FAERS Safety Report 9177567 (Version 1)
Quarter: 2013Q1

REPORT INFORMATION
  Report Type: Spontaneous
  Country: GB (occurrence: GB)
  Receive Date: 20130321
  Receipt Date: 20130321
  Transmission Date: 20140127
  Serious: No
  Sender: FDA-Public Use
  Company Number: GB-BAYER-2013-034193

PATIENT
  Sex: Female

DRUGS (1)
  1. CANESTEN PESSARY [Suspect]
     Dosage: UNK
     Dates: start: 20130314

REACTIONS (2)
  - Drug ineffective [None]
  - Vaginal discharge [None]
